FAERS Safety Report 15763426 (Version 1)
Quarter: 2018Q4

REPORT INFORMATION
  Report Type: Spontaneous
  Country: FR (occurrence: FR)
  Receive Date: 20181227
  Receipt Date: 20181227
  Transmission Date: 20190205
  Serious: Yes (Hospitalization)
  Sender: FDA-Public Use
  Company Number: FR-SUN PHARMACEUTICAL INDUSTRIES LTD-2018RR-189533

PATIENT
  Age: 89 Year
  Sex: Male
  Weight: 47 kg

DRUGS (5)
  1. RAMIPRIL. [Suspect]
     Active Substance: RAMIPRIL
     Indication: HYPERTENSION
     Dosage: 7.5 MILLIGRAM, QD
     Route: 048
     Dates: end: 20180909
  2. MIANSERIN [Suspect]
     Active Substance: MIANSERIN
     Indication: DEPRESSION
     Dosage: 10 MILLIGRAM, QD
     Route: 048
  3. FUROSEMIDE. [Suspect]
     Active Substance: FUROSEMIDE
     Indication: CONGESTIVE CARDIOMYOPATHY
     Dosage: CF COMMENTAIRES ()
     Route: 048
     Dates: start: 20180825, end: 20180909
  4. SPIRONOLACTONE. [Suspect]
     Active Substance: SPIRONOLACTONE
     Indication: HYPERTENSION
     Dosage: 2.5 MILLIGRAM, QD
     Route: 048
     Dates: end: 20180909
  5. DULOXETINE (CHLORHYDRATE DE) [Suspect]
     Active Substance: DULOXETINE
     Indication: DEPRESSION
     Dosage: 30 MILLIGRAM, QD
     Route: 048
     Dates: end: 20180909

REACTIONS (1)
  - Hyponatraemia [Recovering/Resolving]

NARRATIVE: CASE EVENT DATE: 20180909
